FAERS Safety Report 7248456-3 (Version None)
Quarter: 2011Q1

REPORT INFORMATION
  Report Type: 
  Country: None (occurrence: None)
  Receive Date: 20110127
  Receipt Date: 20110122
  Transmission Date: 20110831
  Serious: Yes (Death, Life-Threatening)
  Sender: FDA-Public Use
  Company Number: GB-PFIZER INC-GB-WYE-G05408210

PATIENT
  Age: 68 Year
  Sex: Male

DRUGS (3)
  1. GEMTUZUMAB OZOGAMICIN [Suspect]
     Indication: ACUTE MYELOID LEUKAEMIA
     Dosage: UNKNOWN
     Route: 065
     Dates: start: 20100105, end: 20100114
  2. DAUNORUBICIN HCL [Suspect]
     Dosage: UNKNOWN
     Route: 065
     Dates: start: 20100105, end: 20100114
  3. CYTARABINE [Suspect]
     Dosage: UNKNOWN
     Route: 065
     Dates: start: 20100105, end: 20100114

REACTIONS (3)
  - ACUTE RESPIRATORY DISTRESS SYNDROME [None]
  - LOWER RESPIRATORY TRACT INFECTION [None]
  - NEUTROPENIC SEPSIS [None]
